FAERS Safety Report 7603514-6 (Version None)
Quarter: 2011Q3

REPORT INFORMATION
  Report Type: 
  Country: None (occurrence: None)
  Receive Date: 20110711
  Receipt Date: 20110711
  Transmission Date: 20111222
  Serious: No
  Sender: FDA-Public Use
  Company Number: None

PATIENT
  Age: 19 Year
  Sex: Male

DRUGS (1)
  1. UPRIZING 2.0 [Suspect]
     Dates: start: 20110601, end: 20110601

REACTIONS (7)
  - BACK PAIN [None]
  - BLOOD POTASSIUM INCREASED [None]
  - ABDOMINAL PAIN [None]
  - CONSTIPATION [None]
  - MOOD SWINGS [None]
  - PYREXIA [None]
  - HEPATIC FUNCTION ABNORMAL [None]
